FAERS Safety Report 4357981-4 (Version None)
Quarter: 2004Q2

REPORT INFORMATION
  Report Type: 
  Country: None (occurrence: None)
  Receive Date: 20040510
  Receipt Date: 20040426
  Transmission Date: 20050107
  Serious: Yes (Disabling)
  Sender: FDA-Public Use
  Company Number: 2004-CN-00178CN

PATIENT
  Age: 68 Year
  Sex: Male

DRUGS (1)
  1. SPIRIVA [Suspect]
     Indication: CHRONIC OBSTRUCTIVE AIRWAYS DISEASE
     Dosage: 18 MCG (18 MCG, OD)
     Route: 055

REACTIONS (3)
  - BRONCHOSPASM [None]
  - HYPOAESTHESIA ORAL [None]
  - SWOLLEN TONGUE [None]
